FAERS Safety Report 25196873 (Version 1)
Quarter: 2025Q2

REPORT INFORMATION
  Report Type: Spontaneous
  Country: JP (occurrence: JP)
  Receive Date: 20250415
  Receipt Date: 20250415
  Transmission Date: 20250716
  Serious: Yes (Hospitalization, Other)
  Sender: GLAXOSMITHKLINE
  Company Number: JP-GSK-JP2025JPN041798

PATIENT

DRUGS (47)
  1. MEPOLIZUMAB [Suspect]
     Active Substance: MEPOLIZUMAB
     Indication: Eosinophilic granulomatosis with polyangiitis
     Dosage: 300 MG, Q4W
     Dates: start: 20180910, end: 20200403
  2. FLUTICASONE PROPIONATE [Concomitant]
     Active Substance: FLUTICASONE PROPIONATE
     Indication: Eosinophilic granulomatosis with polyangiitis
     Dosage: 400 ?G, 1D
     Route: 055
     Dates: end: 20200512
  3. NEORAL [Concomitant]
     Active Substance: CYCLOSPORINE
     Indication: Eosinophilic granulomatosis with polyangiitis
     Dates: start: 20090423
  4. NEORAL [Concomitant]
     Active Substance: CYCLOSPORINE
     Dosage: 125 MG, 1D
     Dates: start: 20180910, end: 20181011
  5. NEORAL [Concomitant]
     Active Substance: CYCLOSPORINE
     Dosage: 100 MG, 1D
     Dates: start: 20181012
  6. PREDNISOLONE [Concomitant]
     Active Substance: PREDNISOLONE
     Indication: Eosinophilic granulomatosis with polyangiitis
     Dates: start: 20080608
  7. PREDNISOLONE [Concomitant]
     Active Substance: PREDNISOLONE
     Indication: Purpura
     Dosage: 12 MG, 1D
     Dates: end: 20180910
  8. PREDNISOLONE [Concomitant]
     Active Substance: PREDNISOLONE
     Dosage: 10 MG, 1D
     Dates: start: 20181109, end: 20190214
  9. PREDNISOLONE [Concomitant]
     Active Substance: PREDNISOLONE
     Dosage: 8 MG, 1D
     Dates: start: 20190215, end: 20190314
  10. PREDNISOLONE [Concomitant]
     Active Substance: PREDNISOLONE
     Dosage: 7 MG, 1D
     Dates: start: 20190315, end: 20190416
  11. PREDNISOLONE [Concomitant]
     Active Substance: PREDNISOLONE
     Dosage: 6 MG, 1D
     Dates: start: 20190417, end: 20190519
  12. PREDNISOLONE [Concomitant]
     Active Substance: PREDNISOLONE
     Dosage: 5 MG, 1D
     Dates: start: 20190520, end: 20200402
  13. PREDNISOLONE [Concomitant]
     Active Substance: PREDNISOLONE
     Dosage: 10 MG, 1D
     Dates: start: 20200403, end: 20200407
  14. PREDNISOLONE [Concomitant]
     Active Substance: PREDNISOLONE
     Dosage: 15 MG, 1D
     Dates: start: 20200408, end: 20200422
  15. PREDNISOLONE [Concomitant]
     Active Substance: PREDNISOLONE
     Dosage: 14 MG, 1D
     Dates: start: 20200423, end: 20200514
  16. PREDNISOLONE [Concomitant]
     Active Substance: PREDNISOLONE
     Dosage: 13 MG, 1D
     Dates: start: 20200515, end: 20201218
  17. PREDNISOLONE [Concomitant]
     Active Substance: PREDNISOLONE
     Dates: end: 202007
  18. THEOPHYLLINE [Concomitant]
     Active Substance: THEOPHYLLINE
     Indication: Eosinophilic granulomatosis with polyangiitis
     Dosage: 400 MG, 1D
     Dates: start: 20180910
  19. LYRICA [Concomitant]
     Active Substance: PREGABALIN
     Indication: Eosinophilic granulomatosis with polyangiitis
  20. CELECOXIB [Concomitant]
     Active Substance: CELECOXIB
     Indication: Eosinophilic granulomatosis with polyangiitis
  21. LANSOPRAZOLE [Concomitant]
     Active Substance: LANSOPRAZOLE
     Indication: Chronic gastritis
  22. FEXOFENADINE HYDROCHLORIDE [Concomitant]
     Active Substance: FEXOFENADINE HYDROCHLORIDE
  23. METHYLCOBALAMIN [Concomitant]
     Active Substance: METHYLCOBALAMIN
     Indication: Eosinophilic granulomatosis with polyangiitis
  24. LIORESAL [Concomitant]
     Active Substance: BACLOFEN
     Indication: Hemiparesis
  25. POTASSIUM ASPARTATE [Concomitant]
     Active Substance: POTASSIUM ASPARTATE
     Indication: Hypokalaemia
  26. BROTIZOLAM [Concomitant]
     Active Substance: BROTIZOLAM
     Indication: Insomnia
  27. HERBALS [Concomitant]
     Active Substance: HERBALS
     Indication: Constipation
  28. TRAZODONE HYDROCHLORIDE [Concomitant]
     Active Substance: TRAZODONE HYDROCHLORIDE
     Indication: Insomnia
  29. SENNOSIDES [Concomitant]
     Active Substance: SENNOSIDES
     Indication: Constipation
  30. NIZORAL [Concomitant]
     Active Substance: KETOCONAZOLE
     Indication: Tinea infection
  31. Heparinoid [Concomitant]
     Indication: Asteatosis
  32. Calfina [Concomitant]
     Indication: Osteoporosis
  33. PROCATEROL HYDROCHLORIDE [Concomitant]
     Active Substance: PROCATEROL HYDROCHLORIDE
     Indication: Eosinophilic granulomatosis with polyangiitis
     Route: 055
     Dates: start: 20191018
  34. PULMICORT TURBUHALER [Concomitant]
     Active Substance: BUDESONIDE
     Indication: Eosinophilic granulomatosis with polyangiitis
     Dosage: 400 ?G, 1D
     Route: 055
     Dates: start: 20200513
  35. SODIUM PICOSULFATE [Concomitant]
     Active Substance: SODIUM PICOSULFATE
     Indication: Constipation
  36. MIRABEGRON [Concomitant]
     Active Substance: MIRABEGRON
     Indication: Hypertonic bladder
  37. OLOPATADINE HYDROCHLORIDE [Concomitant]
     Active Substance: OLOPATADINE HYDROCHLORIDE
  38. ALENDRONATE SODIUM [Concomitant]
     Active Substance: ALENDRONATE SODIUM
     Indication: Osteoporosis
  39. AZOSEMIDE [Concomitant]
     Active Substance: AZOSEMIDE
     Indication: Oedema
  40. Tokakujokito [Concomitant]
     Indication: Constipation
  41. CILOSTAZOL [Concomitant]
     Active Substance: CILOSTAZOL
     Indication: Cerebral infarction
  42. SULFAMETHOXAZOLE\TRIMETHOPRIM [Concomitant]
     Active Substance: SULFAMETHOXAZOLE\TRIMETHOPRIM
  43. CEFTRIAXONE [Concomitant]
     Active Substance: CEFTRIAXONE
     Indication: Urinary tract infection
     Dosage: 2 G, 1D
     Dates: start: 20200427, end: 20200430
  44. CEFTRIAXONE [Concomitant]
     Active Substance: CEFTRIAXONE
     Indication: Disseminated intravascular coagulation
  45. ARGATROBAN [Concomitant]
     Active Substance: ARGATROBAN
     Indication: Cerebral infarction
     Dates: start: 20200403, end: 20200416
  46. CILOSTAZOL [Concomitant]
     Active Substance: CILOSTAZOL
     Indication: Cerebral infarction
     Dosage: 100 MG, 1D
     Dates: start: 20200415
  47. CILOSTAZOL [Concomitant]
     Active Substance: CILOSTAZOL
     Dosage: 200 MG, 1D
     Dates: start: 20200417

REACTIONS (1)
  - Urosepsis [Recovered/Resolved]

NARRATIVE: CASE EVENT DATE: 20200523
